FAERS Safety Report 9571311 (Version 1)
Quarter: 2013Q4

REPORT INFORMATION
  Report Type: Spontaneous
  Country: SG (occurrence: SG)
  Receive Date: 20131001
  Receipt Date: 20131001
  Transmission Date: 20140711
  Serious: Yes (Hospitalization)
  Sender: FDA-Public Use
  Company Number: SG-SA-2013SA096088

PATIENT
  Sex: Female

DRUGS (2)
  1. LEUPRORELIN ACETATE [Suspect]
     Indication: OVULATION INDUCTION
     Route: 065
  2. HORMONES [Suspect]
     Indication: OVULATION INDUCTION
     Dosage: DOSE:150 UNIT(S)
     Route: 065

REACTIONS (2)
  - Ovarian hyperstimulation syndrome [Unknown]
  - Off label use [Unknown]
